FAERS Safety Report 6793060-4 (Version None)
Quarter: 2010Q2

REPORT INFORMATION
  Report Type: 
  Country: None (occurrence: None)
  Receive Date: 20100624
  Receipt Date: 20081105
  Transmission Date: 20101027
  Serious: No
  Sender: FDA-Public Use
  Company Number: US-PFIZER INC-2008094585

PATIENT
  Age: 80 Year
  Sex: Female
  Weight: 84.09 kg

DRUGS (1)
  1. AROMASIN [Suspect]
     Indication: BREAST CANCER
     Dates: start: 20081001

REACTIONS (1)
  - OEDEMA PERIPHERAL [None]
